FAERS Safety Report 8464807-6 (Version None)
Quarter: 2012Q2

REPORT INFORMATION
  Report Type: 
  Country: None (occurrence: None)
  Receive Date: 20120626
  Receipt Date: 20120614
  Transmission Date: 20120825
  Serious: Yes (Hospitalization, Other)
  Sender: FDA-Public Use
  Company Number: BR-US-EMD SERONO, INC.-7140480

PATIENT
  Sex: Male

DRUGS (4)
  1. CLOBAZAM [Concomitant]
     Indication: PRODUCT USED FOR UNKNOWN INDICATION
  2. CARBAMAZEPINE [Concomitant]
     Indication: PRODUCT USED FOR UNKNOWN INDICATION
  3. RISPERIDONE [Concomitant]
     Indication: PRODUCT USED FOR UNKNOWN INDICATION
  4. REBIF [Suspect]
     Indication: RELAPSING-REMITTING MULTIPLE SCLEROSIS
     Dates: start: 20090901

REACTIONS (9)
  - VISION BLURRED [None]
  - FALL [None]
  - NOSOCOMIAL INFECTION [None]
  - RESPIRATORY ARREST [None]
  - INJURY [None]
  - MICTURITION DISORDER [None]
  - SPEECH DISORDER [None]
  - CONSTIPATION [None]
  - MEMORY IMPAIRMENT [None]
